FAERS Safety Report 9858428 (Version 2)
Quarter: 2014Q1

REPORT INFORMATION
  Report Type: Spontaneous
  Country: GR (occurrence: GR)
  Receive Date: 20140131
  Receipt Date: 20140331
  Transmission Date: 20141002
  Serious: Yes (Hospitalization, Other)
  Sender: FDA-Public Use
  Company Number: GR-ROCHE-1336761

PATIENT
  Age: 46 Year
  Sex: Female

DRUGS (11)
  1. BEVACIZUMAB [Suspect]
     Indication: BREAST CANCER STAGE IV
     Dosage: 6 CYCLES
     Route: 065
     Dates: start: 200802, end: 200805
  2. BEVACIZUMAB [Suspect]
     Route: 065
     Dates: end: 200902
  3. CAPECITABINE [Suspect]
     Indication: BREAST CANCER STAGE IV
     Dosage: 2 WEEKS ON, 1 WEEK OFF
     Route: 065
     Dates: start: 20130220
  4. TRASTUZUMAB [Suspect]
     Indication: BREAST CANCER STAGE IV
     Route: 065
     Dates: start: 20130220
  5. TRASTUZUMAB [Suspect]
     Route: 065
  6. EXEMESTANE [Suspect]
     Indication: PRODUCT USED FOR UNKNOWN INDICATION
     Route: 065
  7. GOSERELIN [Suspect]
     Indication: PRODUCT USED FOR UNKNOWN INDICATION
     Route: 065
  8. DOCETAXEL [Suspect]
     Indication: BREAST CANCER STAGE IV
     Route: 065
     Dates: start: 200802, end: 200805
  9. CARBOPLATIN [Suspect]
     Indication: BREAST CANCER STAGE IV
     Route: 065
     Dates: start: 200802, end: 200805
  10. PARACETAMOL [Concomitant]
  11. SUMATRIPTAN [Concomitant]

REACTIONS (9)
  - Dyspnoea [Unknown]
  - Breast cancer recurrent [Unknown]
  - Disease progression [Unknown]
  - Carbohydrate antigen 15-3 increased [Unknown]
  - Metastases to lymph nodes [Unknown]
  - Metastases to liver [Unknown]
  - Breast cancer [Unknown]
  - Pericardial effusion malignant [Recovered/Resolved]
  - Cardiac failure congestive [Recovered/Resolved]
